FAERS Safety Report 7472484-6 (Version None)
Quarter: 2011Q2

REPORT INFORMATION
  Report Type: 
  Country: None (occurrence: None)
  Receive Date: 20110511
  Receipt Date: 20110321
  Transmission Date: 20111010
  Serious: Yes (Other)
  Sender: FDA-Public Use
  Company Number: US-BAYER-201035529NA

PATIENT
  Age: 27 Year
  Sex: Female
  Weight: 99.773 kg

DRUGS (10)
  1. VOLTAREN [Concomitant]
  2. YAZ [Suspect]
     Indication: PRODUCT USED FOR UNKNOWN INDICATION
     Dates: start: 20021001
  3. DROSPIRENONE AND ETHINYL ESTRADIOL [Suspect]
     Indication: PRODUCT USED FOR UNKNOWN INDICATION
     Dates: start: 20021001
  4. ADDERALL 10 [Concomitant]
  5. YASMIN [Suspect]
     Indication: ORAL CONTRACEPTION
     Dosage: UNK
     Dates: start: 20021001, end: 20081101
  6. TRAMADOL HCL [Concomitant]
  7. PANTOPRAZOLE [Concomitant]
  8. PSEUDOEPHEDRINE HCL [Concomitant]
  9. SEROQUEL [Concomitant]
  10. PERCOCET [Concomitant]

REACTIONS (2)
  - CHOLECYSTITIS CHRONIC [None]
  - GALLBLADDER DISORDER [None]
